FAERS Safety Report 15496947 (Version 3)
Quarter: 2018Q4

REPORT INFORMATION
  Report Type: Spontaneous
  Country: FR (occurrence: FR)
  Receive Date: 20181015
  Receipt Date: 20181108
  Transmission Date: 20190205
  Serious: Yes (Hospitalization, Other)
  Sender: FDA-Public Use
  Company Number: FR-AUROBINDO-AUR-APL-2018-049939

PATIENT
  Age: 70 Year
  Sex: Male

DRUGS (11)
  1. DEXERYL                            /00557601/ [Concomitant]
     Active Substance: CHLORPHENIRAMINE MALEATE\DEXTROMETHORPHAN HYDROBROMIDE\GUAIFENESIN\PHENYLEPHRINE HYDROCHLORIDE
     Indication: ECZEMA
     Dosage: 1 DOSAGE FORM, ONCE A DAY (1 ABSENT, QD ).
     Route: 003
  2. CANDESARTAN TABLET [Suspect]
     Active Substance: CANDESARTAN
     Indication: HYPERTENSION
     Dosage: 4 MG, DAILY
     Route: 048
     Dates: start: 20180911
  3. ELIQUIS [Suspect]
     Active Substance: APIXABAN
     Indication: ATRIAL FLUTTER
     Dosage: 10 MG, DAILY
     Route: 048
     Dates: start: 20180911
  4. LERCAN [Suspect]
     Active Substance: LERCANIDIPINE
     Indication: HYPERTENSION
     Dosage: 10 MG, DAILY
     Route: 048
     Dates: start: 20180911
  5. NOVOMIX [Suspect]
     Active Substance: INSULIN ASPART
     Indication: TYPE 2 DIABETES MELLITUS
     Dosage: UNK
     Route: 058
  6. ELIQUIS [Suspect]
     Active Substance: APIXABAN
     Indication: CEREBROVASCULAR ACCIDENT PROPHYLAXIS
     Dosage: UNK
     Route: 065
  7. METFORMIN FILM-COATED TABLET [Suspect]
     Active Substance: METFORMIN HYDROCHLORIDE
     Indication: TYPE 2 DIABETES MELLITUS
     Dosage: 3 GRAM, ONCE A DAY
     Route: 048
  8. XATRAL                             /00975301/ [Suspect]
     Active Substance: ALFUZOSIN
     Indication: PROSTATOMEGALY
     Dosage: 10 MILLIGRAM, ONCE A DAY (1 DF, DAILY).
     Route: 048
     Dates: start: 20180911
  9. ATENOLOL FILM-COATED TABLET [Suspect]
     Active Substance: ATENOLOL
     Indication: HYPERTENSION
     Dosage: 50 MILLIGRAM, ONCE A DAY
     Route: 048
  10. ATORVASTATIN [Suspect]
     Active Substance: ATORVASTATIN
     Indication: HYPERCHOLESTEROLAEMIA
     Dosage: 10 MILLIGRAM, ONCE A DAY
     Route: 048
  11. RANITIDINE EFFERVESCENT TABLET [Suspect]
     Active Substance: RANITIDINE
     Indication: PRODUCT USED FOR UNKNOWN INDICATION
     Dosage: 150 MG, DAILY
     Route: 048
     Dates: start: 20180911

REACTIONS (2)
  - Off label use [Unknown]
  - Acute kidney injury [Not Recovered/Not Resolved]

NARRATIVE: CASE EVENT DATE: 20180913
